FAERS Safety Report 5502740-X (Version None)
Quarter: 2007Q4

REPORT INFORMATION
  Report Type: 
  Country: None (occurrence: None)
  Receive Date: 20071029
  Receipt Date: 20071017
  Transmission Date: 20080405
  Serious: Yes (Hospitalization, Other)
  Sender: FDA-Public Use
  Company Number: 2007AP001163

PATIENT
  Sex: Female

DRUGS (14)
  1. METFORMIN HCL [Suspect]
     Dosage: 500 MG; ;PO
     Route: 048
  2. RALOXIFENE HCL [Concomitant]
  3. HYDROCHLORIDE [Concomitant]
  4. ATORVASTATIN CALCIUM [Concomitant]
  5. ATENOLOL [Concomitant]
  6. POTASSIUM CHLORIDE [Concomitant]
  7. ACETYLSALICYLIC ACID SRT [Concomitant]
  8. VITAMIN CAP [Concomitant]
  9. FAMOTIDINE [Concomitant]
  10. PIOGLITAZONE [Concomitant]
  11. ALLOPURINOL [Concomitant]
  12. GLIMEPIRIDE [Concomitant]
  13. CALCIUM [Concomitant]
  14. VITAMIN D [Concomitant]

REACTIONS (1)
  - ANAPHYLACTIC SHOCK [None]
